FAERS Safety Report 7610488-0 (Version None)
Quarter: 2011Q3

REPORT INFORMATION
  Report Type: 
  Country: None (occurrence: None)
  Receive Date: 20110715
  Receipt Date: 20110201
  Transmission Date: 20111222
  Serious: Yes (Hospitalization, Other)
  Sender: FDA-Public Use
  Company Number: US-BAYER-200924386NA

PATIENT
  Age: 43 Year
  Sex: Male
  Weight: 63.039 kg

DRUGS (16)
  1. PROTAMINE SULFATE [Concomitant]
     Dosage: 250 MG, UNK
     Route: 042
     Dates: start: 20020626, end: 20020626
  2. OXYCONTIN [Concomitant]
     Indication: SELF-MEDICATION
     Route: 048
  3. HEPARIN [Concomitant]
     Dosage: 250 U, UNK
     Route: 042
     Dates: start: 20020620, end: 20020626
  4. MAGNESIUM SULFATE [Concomitant]
     Dosage: 2 G, UNK
     Route: 042
     Dates: start: 20020626, end: 20020626
  5. INDOMETHACIN [Concomitant]
     Indication: GOUT
     Dosage: 100 MG, UNK
     Route: 048
     Dates: start: 19850101
  6. PENTOTHAL [Concomitant]
     Dosage: 325 MG, UNK
     Route: 042
     Dates: start: 20020626, end: 20020626
  7. TRASYLOL [Suspect]
     Indication: CORONARY ARTERY BYPASS
     Dosage: UNK
     Route: 042
     Dates: start: 20020626, end: 20020626
  8. NORVASC [Concomitant]
     Indication: HYPERTENSION
     Dosage: 10 MG, UNK
     Route: 048
     Dates: start: 20010531
  9. HEPARIN [Concomitant]
     Dosage: 30,000 U, UNK
     Route: 042
     Dates: start: 20020626, end: 20020626
  10. LIDOCAINE [Concomitant]
     Dosage: 100 MG, UNK
     Route: 042
     Dates: start: 20020626, end: 20020626
  11. FRESH FROZEN PLASMA [Concomitant]
     Dosage: UNK
     Dates: start: 20020626
  12. MANNITOL [Concomitant]
     Dosage: 12.5 G, UNK
     Route: 042
     Dates: start: 20020626, end: 20020626
  13. FENTANYL [Concomitant]
     Dosage: 10 MCG
     Route: 042
     Dates: start: 20020626, end: 20020626
  14. TENORMIN [Concomitant]
     Indication: ATRIAL FIBRILLATION
     Dosage: 15 MG, UNK
     Route: 048
     Dates: start: 20010206
  15. ACETYLSALICYLIC ACID SRT [Concomitant]
     Dosage: 81 MG, UNK
     Route: 048
     Dates: start: 20010820
  16. PHENYLEPHRINE HCL [Concomitant]
     Dosage: UNK
     Route: 042
     Dates: start: 20020626, end: 20020626

REACTIONS (13)
  - RENAL FAILURE [None]
  - PAIN [None]
  - RENAL IMPAIRMENT [None]
  - EMOTIONAL DISTRESS [None]
  - ANXIETY [None]
  - FEAR OF DEATH [None]
  - CEREBROVASCULAR ACCIDENT [None]
  - BRAIN INJURY [None]
  - DEPRESSION [None]
  - STRESS [None]
  - UNEVALUABLE EVENT [None]
  - FEAR [None]
  - RENAL INJURY [None]
